FAERS Safety Report 15633358 (Version 5)
Quarter: 2020Q4

REPORT INFORMATION
  Report Type: Spontaneous
  Country: US (occurrence: US)
  Receive Date: 20181119
  Receipt Date: 20201120
  Transmission Date: 20210113
  Serious: No
  Sender: FDA-Public Use
  Company Number: US-PFIZER INC-2018472742

PATIENT
  Age: 68 Year
  Sex: Female

DRUGS (3)
  1. XELJANZ [Suspect]
     Active Substance: TOFACITINIB CITRATE
     Dosage: 5 MG, UNK
  2. XELJANZ [Suspect]
     Active Substance: TOFACITINIB CITRATE
     Dosage: 10 MG, BID (TWO TIME A DAY), 30-DAY SUPPLY
     Route: 048
  3. XELJANZ XR [Suspect]
     Active Substance: TOFACITINIB CITRATE
     Dosage: 11 MG, QD (ONCE A DAY), 30-DAY SUPPLY
     Route: 048

REACTIONS (3)
  - Pain [Not Recovered/Not Resolved]
  - Nasopharyngitis [Unknown]
  - Sensitivity to weather change [Not Recovered/Not Resolved]
